FAERS Safety Report 8905075 (Version 2)
Quarter: 2012Q4

REPORT INFORMATION
  Report Type: 
  Country: US (occurrence: US)
  Receive Date: 20121112
  Receipt Date: 20121226
  Transmission Date: 20130627
  Serious: Yes (Hospitalization)
  Sender: FDA-Public Use
  Company Number: PHEH2012US022032

PATIENT
  Age: 20 Year
  Sex: Female

DRUGS (1)
  1. TOBI [Suspect]
     Indication: CYSTIC FIBROSIS
     Dosage: 300 mg, BID
     Dates: start: 201104

REACTIONS (3)
  - Pneumothorax [Unknown]
  - Condition aggravated [Unknown]
  - Cystic fibrosis [Unknown]
